FAERS Safety Report 4712129-9 (Version None)
Quarter: 2005Q3

REPORT INFORMATION
  Report Type: 
  Country: None (occurrence: None)
  Receive Date: 20050712
  Receipt Date: 20050706
  Transmission Date: 20060218
  Serious: Yes (Life-Threatening)
  Sender: FDA-Public Use
  Company Number: 200512275FR

PATIENT
  Age: 34 Year
  Sex: Male

DRUGS (7)
  1. LANTUS [Suspect]
     Indication: DIABETES MELLITUS
     Route: 058
  2. NOVORAPID [Suspect]
     Indication: DIABETES MELLITUS
     Route: 058
  3. TERCIAN [Concomitant]
     Indication: PSYCHOTIC DISORDER
     Route: 048
  4. MODECATE [Concomitant]
     Indication: PSYCHOTIC DISORDER
     Route: 030
  5. XANAX [Concomitant]
     Route: 048
  6. SEROPRAM [Concomitant]
     Route: 048
  7. ROHYPNOL [Concomitant]
     Route: 048

REACTIONS (8)
  - APHASIA [None]
  - COMA [None]
  - DIFFICULTY IN WALKING [None]
  - ELECTROENCEPHALOGRAM ABNORMAL [None]
  - EXTENSOR PLANTAR RESPONSE [None]
  - HYPERREFLEXIA [None]
  - HYPERTONIA [None]
  - MYDRIASIS [None]
